FAERS Safety Report 7623383-8 (Version None)
Quarter: 2011Q3

REPORT INFORMATION
  Report Type: 
  Country: None (occurrence: None)
  Receive Date: 20110720
  Receipt Date: 20110711
  Transmission Date: 20111222
  Serious: Yes (Other)
  Sender: FDA-Public Use
  Company Number: US-JNJFOC-20110706018

PATIENT
  Sex: Female
  Weight: 58.97 kg

DRUGS (4)
  1. MONISTAT-3 COMBINATION PACK [Concomitant]
     Route: 061
     Dates: start: 20110301, end: 20110301
  2. MONISTAT 3 [Suspect]
     Indication: FUNGAL INFECTION
     Route: 067
     Dates: start: 20110301, end: 20110301
  3. MONISTAT 3 [Suspect]
     Route: 067
  4. MONISTAT-3 COMBINATION PACK [Concomitant]
     Indication: FUNGAL INFECTION
     Route: 067
     Dates: start: 20110301, end: 20110301

REACTIONS (1)
  - VAGINITIS BACTERIAL [None]
